FAERS Safety Report 9470517 (Version 1)
Quarter: 2013Q3

REPORT INFORMATION
  Report Type: Report from Study
  Country: US (occurrence: US)
  Receive Date: 20130822
  Receipt Date: 20130822
  Transmission Date: 20140515
  Serious: Yes (Other)
  Sender: FDA-Public Use
  Company Number: US-JNJFOC-20130808009

PATIENT
  Sex: Female
  Weight: 129.28 kg

DRUGS (1)
  1. REMICADE [Suspect]
     Indication: RHEUMATOID ARTHRITIS
     Route: 042

REACTIONS (3)
  - Ankle fracture [Recovered/Resolved]
  - Bone disorder [Unknown]
  - Weight decreased [Not Recovered/Not Resolved]
